FAERS Safety Report 9887492 (Version 1)
Quarter: 2014Q1

REPORT INFORMATION
  Report Type: Spontaneous
  Country: AU (occurrence: None)
  Receive Date: 20140206
  Receipt Date: 20140206
  Transmission Date: 20141002
  Serious: Yes (Other)
  Sender: FDA-Public Use
  Company Number: 2014000020

PATIENT
  Age: 57 Year
  Sex: Male

DRUGS (16)
  1. ACEON [Suspect]
     Indication: PRODUCT USED FOR UNKNOWN INDICATION
  2. ATORVASTATIN CALCIUM [Suspect]
     Indication: PRODUCT USED FOR UNKNOWN INDICATION
  3. FELODIPINE [Suspect]
     Indication: PRODUCT USED FOR UNKNOWN INDICATION
  4. METOPROLOL [Suspect]
     Indication: PRODUCT USED FOR UNKNOWN INDICATION
  5. MIRTAZAPINE (MIRTAZAPINE) [Suspect]
     Indication: PRODUCT USED FOR UNKNOWN INDICATION
  6. OXYCONTIN (OXYCODONE HYDROCHLORIDE) [Suspect]
     Indication: PRODUCT USED FOR UNKNOWN INDICATION
     Dates: start: 20130722
  7. SPIRIVA (TIOTROPIUM BROMIDE) (TIOTROPIUM BROMIDE) [Suspect]
     Indication: PRODUCT USED FOR UNKNOWN INDICATION
  8. COUMADINE (WARFARIN SODIUM) [Concomitant]
  9. NICOTINE (NICOTINE) PATCH [Concomitant]
  10. SERETIDE (FLUTICASONE PROPIONATE, SALMETEROL XINAFOATE) [Concomitant]
  11. ALLOPURINO [Concomitant]
  12. ASPIRIN (ASPIRIN) [Concomitant]
  13. CHOLECALCIFEROL (CHOLECALCIFEROL) [Concomitant]
  14. METFORMIN HYDROCHLORIDE (METFORMIN HYDROCHORIDE) [Concomitant]
  15. PANTOPRAZOLE (PANTOPRAZOLE) [Concomitant]
  16. PROCHLORPERAZINE MALEATE (PROCHLORPERAZINE MALEATE) [Concomitant]

REACTIONS (1)
  - Intestinal obstruction [None]
